FAERS Safety Report 4664072-1 (Version None)
Quarter: 2005Q2

REPORT INFORMATION
  Report Type: 
  Country: None (occurrence: None)
  Receive Date: 20050510
  Receipt Date: 20050426
  Transmission Date: 20051028
  Serious: Yes (Other)
  Sender: FDA-Public Use
  Company Number: HQWYE417328APR05

PATIENT

DRUGS (1)
  1. BENEFIX [Suspect]

REACTIONS (2)
  - DRUG INEFFECTIVE [None]
  - HAEMORRHAGE [None]
